FAERS Safety Report 5846022-5 (Version None)
Quarter: 2008Q3

REPORT INFORMATION
  Report Type: 
  Country: None (occurrence: None)
  Receive Date: 20080814
  Receipt Date: 20080804
  Transmission Date: 20090109
  Serious: Yes (Hospitalization)
  Sender: FDA-Public Use
  Company Number: US-PFIZER INC-2008066575

PATIENT
  Age: 54 Year
  Sex: Female

DRUGS (5)
  1. LITHIUM CARBONATE [Suspect]
     Indication: BIPOLAR DISORDER
  2. CARBAMAZEPINE [Concomitant]
  3. AMLODIPINE [Concomitant]
  4. ATORVASTATIN [Concomitant]
  5. CLONAZEPAM [Concomitant]

REACTIONS (8)
  - BRADYCARDIA [None]
  - CONDITION AGGRAVATED [None]
  - DIABETES INSIPIDUS [None]
  - HYPOTENSION [None]
  - HYPOTHYROIDISM [None]
  - LETHARGY [None]
  - RENAL FAILURE ACUTE [None]
  - THERAPEUTIC AGENT TOXICITY [None]
